FAERS Safety Report 11966195 (Version 3)
Quarter: 2016Q2

REPORT INFORMATION
  Report Type: Report from Study
  Country: JP (occurrence: JP)
  Receive Date: 20160127
  Receipt Date: 20160404
  Transmission Date: 20160815
  Serious: Yes (Other)
  Sender: FDA-Public Use
  Company Number: JP-ACTELION-A-CH2016-130411

PATIENT
  Age: 44 Year
  Sex: Male

DRUGS (8)
  1. VELETRI [Suspect]
     Active Substance: EPOPROSTENOL
     Dosage: 1.0 NG/KG, PER MIN
     Route: 042
     Dates: start: 20140522, end: 20140603
  2. MILRINONE [Concomitant]
     Active Substance: MILRINONE
  3. CARPERITIDE [Concomitant]
     Active Substance: CARPERITIDE
  4. BOSENTAN. [Concomitant]
     Active Substance: BOSENTAN
     Indication: PULMONARY ARTERIAL HYPERTENSION
  5. VELETRI [Suspect]
     Active Substance: EPOPROSTENOL
     Indication: PULMONARY ARTERIAL HYPERTENSION
     Dosage: 2.0 NG/KG, PER MIN
     Route: 042
     Dates: start: 20140604, end: 20140604
  6. FUROSEMIDE. [Concomitant]
     Active Substance: FUROSEMIDE
  7. OXYGEN. [Concomitant]
     Active Substance: OXYGEN
  8. TADALAFIL [Concomitant]
     Active Substance: TADALAFIL

REACTIONS (7)
  - Aspartate aminotransferase increased [Recovered/Resolved]
  - Blood alkaline phosphatase increased [Recovered/Resolved]
  - Blood urea increased [Recovered/Resolved]
  - Hepatic enzyme increased [Recovered/Resolved]
  - Device colour issue [Recovered/Resolved]
  - Alanine aminotransferase increased [Recovered/Resolved]
  - Gamma-glutamyltransferase increased [Recovered/Resolved]

NARRATIVE: CASE EVENT DATE: 20140604
